FAERS Safety Report 10156578 (Version 1)
Quarter: 2014Q2

REPORT INFORMATION
  Report Type: Spontaneous
  Country: US (occurrence: None)
  Receive Date: 20140505
  Receipt Date: 20140505
  Transmission Date: 20141212
  Serious: Yes (Hospitalization)
  Sender: FDA-Public Use
  Company Number: B0989573A

PATIENT
  Age: 50 Year
  Sex: Female

DRUGS (5)
  1. SUMATRIPTAN SUCCINATE INJECTION (GENERIC) (SUMATRIPTAN SUCCINATE) [Suspect]
     Indication: MIGRAINE
     Route: 058
  2. SUMATRIPTAN SUCCINATE TABLET (GENERIC) (SUMATRIPTAN SUCCINATE) [Suspect]
     Indication: MIGRAINE
  3. OLMESARTAN [Concomitant]
  4. CYCLOBENZAPRINE HCL [Concomitant]
  5. NAPROXEN [Concomitant]

REACTIONS (1)
  - Colitis ischaemic [None]
